FAERS Safety Report 7980377-0 (Version None)
Quarter: 2011Q4

REPORT INFORMATION
  Report Type: 
  Country: None (occurrence: None)
  Receive Date: 20111214
  Receipt Date: 20111206
  Transmission Date: 20120403
  Serious: Yes (Hospitalization, Other)
  Sender: FDA-Public Use
  Company Number: JP-JNJFOC-20111203637

PATIENT
  Age: 86 Year
  Sex: Female
  Weight: 40 kg

DRUGS (11)
  1. WARFARIN SODIUM [Interacting]
     Indication: PRODUCT USED FOR UNKNOWN INDICATION
     Route: 065
  2. WARFARIN SODIUM [Interacting]
     Route: 065
     Dates: end: 20111015
  3. FLORID ORAL GEL [Suspect]
     Route: 049
  4. FLORID ORAL GEL [Suspect]
     Indication: ORAL CANDIDIASIS
     Route: 049
     Dates: start: 20110921, end: 20110927
  5. VERAPAMIL HCL [Concomitant]
     Route: 048
  6. PIMENOL [Concomitant]
     Route: 048
  7. SELBEX [Concomitant]
     Route: 048
  8. WARFARIN SODIUM [Interacting]
     Route: 065
     Dates: start: 20111016
  9. LENDORMIN [Concomitant]
     Route: 048
  10. ASPIRIN [Concomitant]
     Route: 048
  11. ALOSENN [Concomitant]
     Route: 048

REACTIONS (4)
  - HAEMATURIA [None]
  - HAEMORRHAGE SUBCUTANEOUS [None]
  - INTERNATIONAL NORMALISED RATIO INCREASED [None]
  - DRUG INTERACTION [None]
